FAERS Safety Report 7475811-9 (Version None)
Quarter: 2011Q2

REPORT INFORMATION
  Report Type: 
  Country: None (occurrence: None)
  Receive Date: 20110512
  Receipt Date: 20110503
  Transmission Date: 20111010
  Serious: Yes (Death, Other)
  Sender: FDA-Public Use
  Company Number: 2008BI009359

PATIENT
  Age: 49 Year
  Sex: Male

DRUGS (1)
  1. TYSABRI [Suspect]
     Indication: MULTIPLE SCLEROSIS
     Route: 042
     Dates: start: 20061031, end: 20070912

REACTIONS (3)
  - MULTIPLE SCLEROSIS [None]
  - CHRONIC RESPIRATORY FAILURE [None]
  - CARDIAC ARREST [None]
